FAERS Safety Report 10388238 (Version 1)
Quarter: 2014Q3

REPORT INFORMATION
  Report Type: Spontaneous
  Country: FR (occurrence: FR)
  Receive Date: 20140815
  Receipt Date: 20140815
  Transmission Date: 20150326
  Serious: Yes (Hospitalization)
  Sender: FDA-Public Use
  Company Number: ALCN2014FR004554

PATIENT
  Age: 11 Year
  Sex: Male

DRUGS (14)
  1. DEXAFREE//DEXAMETHASONE [Suspect]
     Active Substance: DEXAMETHASONE
     Indication: UVEITIS
     Dosage: UNK
     Route: 047
     Dates: start: 2008
  2. DEXAFREE//DEXAMETHASONE [Suspect]
     Active Substance: DEXAMETHASONE
     Dosage: 5 GTT, QD
     Route: 047
     Dates: start: 200903
  3. KENACORT [Suspect]
     Active Substance: TRIAMCINOLONE
     Dosage: 1 DF, ONCE/SINGLE
     Route: 057
     Dates: start: 201010
  4. DEXAFREE//DEXAMETHASONE [Suspect]
     Active Substance: DEXAMETHASONE
     Dosage: UNK
     Route: 047
     Dates: start: 201210, end: 201309
  5. MAXIDEX [Suspect]
     Active Substance: DEXAMETHASONE
     Indication: UVEITIS
     Dosage: UNK
     Route: 047
     Dates: start: 200808
  6. HUMIRA [Concomitant]
     Active Substance: ADALIMUMAB
     Dosage: UNK
     Dates: start: 201309
  7. KENACORT [Suspect]
     Active Substance: TRIAMCINOLONE
     Indication: MACULAR OEDEMA
     Dosage: 1 DF, ONCE/SINGLE
     Route: 057
     Dates: start: 201004
  8. DEXAFREE//DEXAMETHASONE [Suspect]
     Active Substance: DEXAMETHASONE
     Dosage: 6 GTT, QD
     Route: 047
     Dates: start: 201001
  9. COSOPT [Concomitant]
     Active Substance: DORZOLAMIDE HYDROCHLORIDE\TIMOLOL MALEATE
     Indication: INTRAOCULAR PRESSURE INCREASED
     Dosage: UNK
     Dates: start: 20111227
  10. DEXAFREE//DEXAMETHASONE [Suspect]
     Active Substance: DEXAMETHASONE
     Dosage: 2 GTT, QD
     Route: 047
     Dates: start: 200902, end: 200903
  11. DEXAFREE//DEXAMETHASONE [Suspect]
     Active Substance: DEXAMETHASONE
     Dosage: 3 GTT, QD
     Route: 047
     Dates: start: 201005
  12. DIAMOX SEQUELS [Concomitant]
     Active Substance: ACETAZOLAMIDE
     Dosage: UNK
     Dates: start: 201309
  13. DIAMOX SEQUELS [Concomitant]
     Active Substance: ACETAZOLAMIDE
     Indication: INTRAOCULAR PRESSURE INCREASED
     Dosage: UNK
     Dates: start: 201303
  14. KENACORT [Suspect]
     Active Substance: TRIAMCINOLONE
     Dosage: 1 DF, ONCE/SINGLE
     Route: 057
     Dates: start: 20111216

REACTIONS (3)
  - Intraocular pressure increased [Recovering/Resolving]
  - Adrenal insufficiency [Recovered/Resolved]
  - Cataract [Not Recovered/Not Resolved]

NARRATIVE: CASE EVENT DATE: 201101
